FAERS Safety Report 8297858-5 (Version None)
Quarter: 2012Q2

REPORT INFORMATION
  Report Type: 
  Country: None (occurrence: None)
  Receive Date: 20120419
  Receipt Date: 20120412
  Transmission Date: 20120825
  Serious: Yes (Hospitalization, Other)
  Sender: FDA-Public Use
  Company Number: CA-ABBOTT-11P-028-0844686-00

PATIENT
  Sex: Male
  Weight: 104.42 kg

DRUGS (5)
  1. DALTEPARIN SODIUM [Concomitant]
     Indication: PRODUCT USED FOR UNKNOWN INDICATION
  2. ABITRATERONE [Concomitant]
     Indication: PRODUCT USED FOR UNKNOWN INDICATION
  3. LUPRON DEPOT [Suspect]
     Indication: PROSTATE CANCER
     Dates: start: 20101129
  4. AVELOX [Concomitant]
     Indication: BRONCHITIS
  5. AMOXICILLIN [Concomitant]
     Indication: BRONCHITIS
     Dates: start: 20120405

REACTIONS (5)
  - AORTIC EMBOLUS [None]
  - HYPERCOAGULATION [None]
  - PROSTATE CANCER METASTATIC [None]
  - OEDEMA PERIPHERAL [None]
  - SYNCOPE [None]
